FAERS Safety Report 6779344-4 (Version None)
Quarter: 2010Q2

REPORT INFORMATION
  Report Type: 
  Country: None (occurrence: None)
  Receive Date: 20100618
  Receipt Date: 20100607
  Transmission Date: 20101027
  Serious: Yes (Other)
  Sender: FDA-Public Use
  Company Number: PHHY2010US38980

PATIENT
  Sex: Female

DRUGS (3)
  1. RECLAST [Suspect]
     Dosage: UNK
     Route: 042
     Dates: start: 20090801
  2. BLOOD PRESSURE MEDICATION [Concomitant]
     Dosage: UNK
  3. STOMACH DISORDER MEDICATION [Concomitant]
     Dosage: UNK

REACTIONS (3)
  - GAIT DISTURBANCE [None]
  - LUMBAR SPINAL STENOSIS [None]
  - PAIN [None]
